FAERS Safety Report 10654297 (Version 2)
Quarter: 2014Q4

REPORT INFORMATION
  Report Type: Spontaneous
  Country: GB (occurrence: None)
  Receive Date: 20141212
  Receipt Date: 20141229
  Transmission Date: 20150529
  Serious: Yes (Other)
  Sender: FDA-Public Use
  Company Number: 2014MPI01573

PATIENT
  Age: 57 Year
  Sex: Female
  Weight: 53 kg

DRUGS (1)
  1. ADCETRIS [Suspect]
     Active Substance: BRENTUXIMAB VEDOTIN
     Indication: HODGKIN^S DISEASE
     Route: 042
     Dates: start: 20140801, end: 20141121

REACTIONS (5)
  - Autoimmune haemolytic anaemia [None]
  - Cold agglutinins positive [None]
  - Intravascular haemolysis [None]
  - Hodgkin^s disease recurrent [None]
  - Fatigue [None]

NARRATIVE: CASE EVENT DATE: 20141119
